FAERS Safety Report 4436318-6 (Version None)
Quarter: 2004Q3

REPORT INFORMATION
  Report Type: 
  Country: None (occurrence: None)
  Receive Date: 20040830
  Receipt Date: 20040729
  Transmission Date: 20050211
  Serious: No
  Sender: FDA-Public Use
  Company Number: US-BRISTOL-MYERS SQUIBB COMPANY-12654778

PATIENT
  Sex: Male

DRUGS (4)
  1. ERBITUX [Suspect]
     Indication: COLON CANCER
     Dosage: LOAD DOSE 800 MG, 500 MG WEEKLY, LAST DOSE GIVEN 28-JUL-04
     Route: 042
     Dates: start: 20040101, end: 20040101
  2. CPT-11 [Concomitant]
     Dosage: GIVEN 28-JUL-04
  3. BENADRYL [Concomitant]
     Indication: PREMEDICATION
  4. ALOXI [Concomitant]
     Indication: PREMEDICATION

REACTIONS (2)
  - BLOOD MAGNESIUM DECREASED [None]
  - DIARRHOEA [None]
